FAERS Safety Report 18760370 (Version 2)
Quarter: 2021Q1

REPORT INFORMATION
  Report Type: Spontaneous
  Country: US (occurrence: US)
  Receive Date: 20210120
  Receipt Date: 20210317
  Transmission Date: 20210419
  Serious: Yes (Hospitalization)
  Sender: FDA-Public Use
  Company Number: US-DRREDDYS-USA/USA/21/0131140

PATIENT
  Sex: Female

DRUGS (5)
  1. PYRIDOXINE HYDROCHLORIDE. [Suspect]
     Active Substance: PYRIDOXINE HYDROCHLORIDE
     Dosage: 7?8 MG/KG/DAY
  2. PYRIDOXINE HYDROCHLORIDE. [Suspect]
     Active Substance: PYRIDOXINE HYDROCHLORIDE
     Indication: CYSTATHIONINE BETA-SYNTHASE DEFICIENCY
     Dosage: 31 MG/KG/DAY
  3. PYRIDOXINE HYDROCHLORIDE. [Suspect]
     Active Substance: PYRIDOXINE HYDROCHLORIDE
  4. PYRIDOXINE HYDROCHLORIDE. [Suspect]
     Active Substance: PYRIDOXINE HYDROCHLORIDE
     Indication: HOMOCYSTINURIA
     Dosage: 54 MG/KG/DAY
  5. PYRIDOXINE HYDROCHLORIDE. [Suspect]
     Active Substance: PYRIDOXINE HYDROCHLORIDE

REACTIONS (4)
  - Hypertransaminasaemia [Unknown]
  - Respiratory failure [Recovered/Resolved]
  - Rhabdomyolysis [Unknown]
  - Toxicity to various agents [Unknown]
